FAERS Safety Report 23843911 (Version 1)
Quarter: 2024Q2

REPORT INFORMATION
  Report Type: Spontaneous
  Country: US (occurrence: US)
  Receive Date: 20240510
  Receipt Date: 20240510
  Transmission Date: 20240716
  Serious: No
  Sender: FDA-Public Use
  Company Number: US-SA-SAC20240501000104

PATIENT
  Sex: Male
  Weight: 50.8 kg

DRUGS (7)
  1. DUPIXENT [Suspect]
     Active Substance: DUPILUMAB
     Indication: Eosinophilic oesophagitis
     Dosage: UNK
     Route: 058
  2. GENOTROPIN [Concomitant]
     Active Substance: SOMATROPIN
  3. OMNITROPE [Concomitant]
     Active Substance: SOMATROPIN
  4. VITAMIN D NOS [Concomitant]
     Active Substance: VITAMIN D NOS
  5. CALCIUM [Concomitant]
     Active Substance: CALCIUM
  6. METHOTREXATE [Concomitant]
     Active Substance: METHOTREXATE
  7. REMICADE [Concomitant]
     Active Substance: INFLIXIMAB

REACTIONS (1)
  - Injection site pain [Recovering/Resolving]
